FAERS Safety Report 4657259-5 (Version None)
Quarter: 2005Q2

REPORT INFORMATION
  Report Type: 
  Country: None (occurrence: None)
  Receive Date: 20050408
  Receipt Date: 20050212
  Transmission Date: 20051028
  Serious: No
  Sender: FDA-Public Use
  Company Number: 230540K05USA

PATIENT
  Age: 55 Year
  Sex: Female

DRUGS (1)
  1. REBIF [Suspect]
     Indication: MULTIPLE SCLEROSIS

REACTIONS (5)
  - CHILLS [None]
  - DIZZINESS [None]
  - FLUID RETENTION [None]
  - NAIL INFECTION [None]
  - NAUSEA [None]
